FAERS Safety Report 7931111-1 (Version None)
Quarter: 2011Q4

REPORT INFORMATION
  Report Type: 
  Country: None (occurrence: None)
  Receive Date: 20111121
  Receipt Date: 20111118
  Transmission Date: 20120403
  Serious: Yes (Other)
  Sender: FDA-Public Use
  Company Number: US-PFIZER INC-2011283382

PATIENT
  Sex: Female
  Weight: 86.168 kg

DRUGS (1)
  1. NEURONTIN [Suspect]
     Indication: NEUROPATHY PERIPHERAL
     Dosage: 100 MG, 3X/DAY
     Dates: start: 20111115

REACTIONS (3)
  - PAIN IN EXTREMITY [None]
  - BACK PAIN [None]
  - HYPOTENSION [None]
